FAERS Safety Report 11727206 (Version 1)
Quarter: 2015Q4

REPORT INFORMATION
  Report Type: Spontaneous
  Country: US (occurrence: US)
  Receive Date: 20151112
  Receipt Date: 20151112
  Transmission Date: 20160304
  Serious: Yes (Other)
  Sender: FDA-Public Use
  Company Number: US-ACORDA-ACO_116065_2015

PATIENT
  Age: 45 Year
  Sex: Female
  Weight: 42.63 kg

DRUGS (4)
  1. AMPYRA [Suspect]
     Active Substance: DALFAMPRIDINE
     Indication: MULTIPLE SCLEROSIS
     Dosage: 5 MG, Q 12 HRS
     Route: 048
     Dates: start: 20150823, end: 20150827
  2. SOMA -GENERIC [Concomitant]
     Indication: MUSCLE SPASMS
     Dosage: UNK
     Route: 065
  3. SOMA -GENERIC [Concomitant]
     Indication: PAIN
  4. AMPYRA [Suspect]
     Active Substance: DALFAMPRIDINE
     Indication: GAIT DISTURBANCE
     Dosage: 10 MG, BID
     Route: 048
     Dates: start: 20150827

REACTIONS (13)
  - Hypertension [Unknown]
  - Palpitations [Recovered/Resolved]
  - Wrong technique in product usage process [Recovered/Resolved]
  - Fall [Unknown]
  - Hair injury [Unknown]
  - Pain [Unknown]
  - Contusion [Unknown]
  - Neck pain [Unknown]
  - Back pain [Unknown]
  - Dizziness [Recovered/Resolved]
  - Hair texture abnormal [Unknown]
  - Upper limb fracture [Unknown]
  - Limb injury [Unknown]

NARRATIVE: CASE EVENT DATE: 20150823
